FAERS Safety Report 13375258 (Version 2)
Quarter: 2017Q1

REPORT INFORMATION
  Report Type: Spontaneous
  Country: US (occurrence: US)
  Receive Date: 20170327
  Receipt Date: 20170329
  Transmission Date: 20170429
  Serious: No
  Sender: FDA-Public Use
  Company Number: US-CLOVIS ONCOLOGY-CLO-2017-000086

PATIENT
  Age: 71 Year
  Sex: Female

DRUGS (3)
  1. PANTOPRAZOLE [Concomitant]
     Active Substance: PANTOPRAZOLE SODIUM
     Indication: GASTROINTESTINAL DISORDER
     Dosage: UNK
     Route: 065
  2. ALIGN PROBIOTIC [Concomitant]
     Indication: PRODUCT USED FOR UNKNOWN INDICATION
     Dosage: UNK
     Route: 065
  3. RUBRACA [Suspect]
     Active Substance: RUCAPARIB CAMSYLATE
     Indication: PERITONEAL NEOPLASM
     Dosage: 600 MG, BID
     Route: 048
     Dates: start: 20170220

REACTIONS (11)
  - Dysgeusia [Unknown]
  - Depressed mood [Unknown]
  - Anxiety [Unknown]
  - Prescribed underdose [Unknown]
  - Off label use [Unknown]
  - Lethargy [Unknown]
  - Depression [Unknown]
  - Asthenia [Unknown]
  - Feeling abnormal [Not Recovered/Not Resolved]
  - Fatigue [Unknown]
  - Decreased appetite [Unknown]

NARRATIVE: CASE EVENT DATE: 2017
